FAERS Safety Report 20722596 (Version 3)
Quarter: 2022Q3

REPORT INFORMATION
  Report Type: Report from Study
  Country: ES (occurrence: ES)
  Receive Date: 20220419
  Receipt Date: 20220812
  Transmission Date: 20221027
  Serious: Yes (Hospitalization)
  Sender: FDA-Public Use
  Company Number: ES-ABBVIE-22K-144-4357126-00

PATIENT
  Age: 69 Year
  Sex: Male
  Weight: 50 kg

DRUGS (3)
  1. CARBIDOPA\LEVODOPA [Suspect]
     Active Substance: CARBIDOPA\LEVODOPA
     Indication: Parkinson^s disease
     Dosage: MORNING: 13.5, CONTINUOUS 8.3 ML/H AND NIGHT CD 4.2 ML/H, EXTRA 4 ML?24 HOURS A DAY
     Route: 050
     Dates: start: 20091005
  2. CARBIDOPA\LEVODOPA [Suspect]
     Active Substance: CARBIDOPA\LEVODOPA
  3. RIVOTRIL [Suspect]
     Active Substance: CLONAZEPAM
     Indication: Product used for unknown indication
     Route: 065

REACTIONS (8)
  - Pneumonia [Recovered/Resolved]
  - General physical health deterioration [Unknown]
  - Productive cough [Recovering/Resolving]
  - Illness [Unknown]
  - Nocturnal dyspnoea [Unknown]
  - Hyperhidrosis [Not Recovered/Not Resolved]
  - Agitation [Not Recovered/Not Resolved]
  - Parkinson^s disease [Unknown]

NARRATIVE: CASE EVENT DATE: 20220301
